FAERS Safety Report 9315718 (Version 2)
Quarter: 2013Q2

REPORT INFORMATION
  Report Type: Spontaneous
  Country: NL (occurrence: NL)
  Receive Date: 20130529
  Receipt Date: 20130624
  Transmission Date: 20140414
  Serious: Yes (Hospitalization)
  Sender: FDA-Public Use
  Company Number: PHHY2013NL053349

PATIENT
  Age: 72 Year
  Sex: Male

DRUGS (6)
  1. METOPROLOL SUCCINATE SANDOZ [Suspect]
     Indication: HYPERTENSION
     Dosage: 50 MG, QD
     Route: 048
     Dates: start: 201304, end: 20130503
  2. LERCANIDIPINE HYDROCHLORIDE [Concomitant]
     Dosage: 10 UKN, QD
     Route: 048
  3. ISPAGHULA (PSYLLA SEEDS) [Concomitant]
     Dosage: 3.4 G, QD
     Route: 048
  4. PANTOPRAZOL [Concomitant]
     Dosage: 40 MG, QD
     Route: 048
  5. BUDESONIDE [Concomitant]
     Dosage: 100 UG, QD
     Route: 048
  6. HYDROCHLOORTHIAZIDE [Concomitant]
     Dosage: 12.5 MG, QD
     Route: 048

REACTIONS (2)
  - Grand mal convulsion [Recovered/Resolved]
  - Product substitution issue [Recovered/Resolved]
